FAERS Safety Report 9256385 (Version 1)
Quarter: 2013Q2

REPORT INFORMATION
  Report Type: Spontaneous
  Country: US (occurrence: US)
  Receive Date: 20130425
  Receipt Date: 20130425
  Transmission Date: 20140414
  Serious: No
  Sender: FDA-Public Use
  Company Number: US-ASTRAZENECA-2013SE25368

PATIENT
  Sex: 0

DRUGS (6)
  1. NEXIUM [Suspect]
     Route: 048
  2. NEXIUM [Suspect]
     Dosage: TWICES DAY
     Route: 048
  3. UNSPECIFIED [Suspect]
     Route: 065
  4. UNSPECIFIED [Suspect]
     Dosage: EVERY OTHER DAY
     Route: 065
  5. ANOTHER DRUG [Concomitant]
  6. PAIN PILLS [Concomitant]

REACTIONS (5)
  - Gastritis [Unknown]
  - Pain [Unknown]
  - Adverse event [Unknown]
  - Intentional drug misuse [Unknown]
  - Drug ineffective [Unknown]
